FAERS Safety Report 8524787-1 (Version None)
Quarter: 2012Q3

REPORT INFORMATION
  Report Type: 
  Country: None (occurrence: None)
  Receive Date: 20120720
  Receipt Date: 20120713
  Transmission Date: 20120928
  Serious: Yes (Hospitalization, Other)
  Sender: FDA-Public Use
  Company Number: BR-GLAXOSMITHKLINE-A0973986A

PATIENT
  Sex: Male
  Weight: 64 kg

DRUGS (9)
  1. PROPANTHELINE BROMIDE [Suspect]
     Indication: PRODUCT USED FOR UNKNOWN INDICATION
     Dosage: 10MG TWICE PER DAY
     Dates: start: 20120409, end: 20120703
  2. ESOMEPRAZOLE [Concomitant]
     Indication: GASTROOESOPHAGEAL REFLUX DISEASE
     Dosage: 20MG TWICE PER DAY
     Dates: start: 20120409, end: 20120505
  3. LAMICTAL [Suspect]
     Indication: EPILEPSY
     Dosage: 50MG TWICE PER DAY
     Route: 048
     Dates: start: 20120405
  4. PARLODEL [Suspect]
     Indication: BLOOD PROLACTIN INCREASED
     Dosage: 5MG THREE TIMES PER DAY
     Dates: start: 20120409, end: 20120410
  5. SULFAMETHOXAZOLE AND TRIMETHOPRIM [Suspect]
     Indication: BACTERIAL INFECTION
     Dosage: 2AMP THREE TIMES PER DAY
     Dates: start: 20120411, end: 20120411
  6. POLYGAM S/D [Concomitant]
     Dates: start: 20120417
  7. ENOXAPARIN SODIUM [Suspect]
     Indication: DEEP VEIN THROMBOSIS
     Dosage: 40MG PER DAY
     Dates: start: 20120404, end: 20120409
  8. HEMAX [Suspect]
     Indication: THERAPEUTIC PROCEDURE
     Dosage: 4000IU PER DAY
     Dates: start: 20120409, end: 20120523
  9. UNSPECIFIED TREATMENT [Concomitant]
     Dates: start: 20120412, end: 20120415

REACTIONS (4)
  - MOUTH HAEMORRHAGE [None]
  - WHITE BLOOD CELL COUNT DECREASED [None]
  - EPISTAXIS [None]
  - THROMBOCYTOPENIA [None]
